FAERS Safety Report 8955531 (Version 1)
Quarter: 2012Q4

REPORT INFORMATION
  Report Type: 
  Country: US (occurrence: US)
  Receive Date: 20121210
  Receipt Date: 20121210
  Transmission Date: 20130627
  Serious: No
  Sender: FDA-Public Use
  Company Number: US-PFIZER INC-2012310053

PATIENT
  Age: 44 Year
  Sex: Female
  Weight: 142 kg

DRUGS (2)
  1. CHANTIX [Suspect]
     Indication: SMOKING CESSATION THERAPY
     Dosage: UNK
     Dates: start: 2007, end: 2007
  2. IBUPROFEN [Concomitant]
     Indication: KNEE ARTHRITIS
     Dosage: 400 mg, as needed

REACTIONS (4)
  - Nightmare [Recovered/Resolved]
  - Dry skin [Recovered/Resolved]
  - Migraine [Recovered/Resolved]
  - Headache [Recovered/Resolved]
